FAERS Safety Report 6645593-9 (Version None)
Quarter: 2010Q1

REPORT INFORMATION
  Report Type: 
  Country: None (occurrence: None)
  Receive Date: 20100319
  Receipt Date: 20100319
  Transmission Date: 20100710
  Serious: No
  Sender: FDA-Public Use
  Company Number: None

PATIENT
  Sex: Male
  Weight: 87.9978 kg

DRUGS (1)
  1. FLOMAX [Suspect]
     Indication: MICTURITION URGENCY
     Dates: start: 20061115, end: 20061206

REACTIONS (2)
  - DIPLOPIA [None]
  - MYASTHENIA GRAVIS [None]
